FAERS Safety Report 23790241 (Version 3)
Quarter: 2024Q2

REPORT INFORMATION
  Report Type: Spontaneous
  Country: AT (occurrence: None)
  Receive Date: 20240426
  Receipt Date: 20240522
  Transmission Date: 20240716
  Serious: Yes (Other)
  Sender: FDA-Public Use
  Company Number: AT-ROCHE-3549781

PATIENT
  Age: 56 Year
  Sex: Male
  Weight: 83 kg

DRUGS (2)
  1. ALECENSA [Suspect]
     Active Substance: ALECTINIB HYDROCHLORIDE
     Indication: Non-small cell lung cancer metastatic
     Dosage: 8X150 MG
     Route: 048
     Dates: start: 20180116
  2. IMATINIB [Concomitant]
     Active Substance: IMATINIB
     Dates: start: 20240119

REACTIONS (1)
  - Chronic myeloid leukaemia [Unknown]

NARRATIVE: CASE EVENT DATE: 20240115
